FAERS Safety Report 13856339 (Version 1)
Quarter: 2017Q3

REPORT INFORMATION
  Report Type: Spontaneous
  Country: DE (occurrence: DE)
  Receive Date: 20170810
  Receipt Date: 20170810
  Transmission Date: 20171127
  Serious: Yes (Other)
  Sender: FDA-Public Use
  Company Number: DE-ABBVIE-17P-062-2068460-00

PATIENT
  Age: 44 Year
  Sex: Female

DRUGS (1)
  1. ERGENYL CHRONO [Suspect]
     Active Substance: VALPROIC ACID
     Indication: EPILEPSY
     Route: 048
     Dates: start: 2013, end: 2017

REACTIONS (5)
  - Arthralgia [Unknown]
  - C-reactive protein increased [Unknown]
  - Conjunctivitis [Unknown]
  - Rash macular [Unknown]
  - Systemic lupus erythematosus [Unknown]

NARRATIVE: CASE EVENT DATE: 20170701
